FAERS Safety Report 11246974 (Version 1)
Quarter: 2015Q3

REPORT INFORMATION
  Report Type: Spontaneous
  Country: US (occurrence: None)
  Receive Date: 20150706
  Receipt Date: 20150706
  Transmission Date: 20151125
  Serious: Yes (Other)
  Sender: FDA-Public Use
  Company Number: None

PATIENT
  Age: 62 Year
  Sex: Female
  Weight: 85.73 kg

DRUGS (6)
  1. BYSTOLIC [Concomitant]
     Active Substance: NEBIVOLOL HYDROCHLORIDE
  2. ALLOPURINOL 300 MG [Suspect]
     Active Substance: ALLOPURINOL
     Indication: PYREXIA
     Dosage: TAKEN BY MOUTH
     Dates: start: 20150625, end: 20150630
  3. SYMVASTATIN [Concomitant]
  4. VITAMIN D [Concomitant]
     Active Substance: CHOLECALCIFEROL
  5. BABY ASPIRIN [Concomitant]
     Active Substance: ASPIRIN
  6. OCUVITE [Concomitant]
     Active Substance: VITAMINS

REACTIONS (3)
  - Unevaluable event [None]
  - Pain [None]
  - Pyrexia [None]

NARRATIVE: CASE EVENT DATE: 20150625
